FAERS Safety Report 6202145-2 (Version None)
Quarter: 2009Q2

REPORT INFORMATION
  Report Type: 
  Country: None (occurrence: None)
  Receive Date: 20090526
  Receipt Date: 20090517
  Transmission Date: 20091009
  Serious: Yes (Death)
  Sender: FDA-Public Use
  Company Number: IN-ELI_LILLY_AND_COMPANY-IN200905003338

PATIENT
  Age: 78 Year
  Sex: Male

DRUGS (7)
  1. XIGRIS [Suspect]
     Indication: SEPSIS
     Dosage: UNK, UNKNOWN
     Route: 042
     Dates: start: 20090510
  2. DOPAMINE HCL [Concomitant]
     Dosage: UNK, UNKNOWN
     Route: 065
     Dates: start: 20090510
  3. DOPAMINE HCL [Concomitant]
     Dosage: UNK( DECREASED DOSE), UNKNOWN
     Route: 065
     Dates: start: 20090511
  4. DOPAMINE HCL [Concomitant]
     Dosage: UNK (DOSE INCREASED), UNKNOWN
     Route: 065
     Dates: start: 20090501
  5. NORADRENALINE [Concomitant]
     Dosage: UNK, UNKNOWN
     Route: 065
     Dates: start: 20090510
  6. NORADRENALINE [Concomitant]
     Dosage: UNK (DECREASED DOSE), UNKNOWN
     Route: 065
     Dates: start: 20090511
  7. NORADRENALINE [Concomitant]
     Dosage: UNK (DOSE INCREASED), UNKNOWN
     Route: 065
     Dates: start: 20090501

REACTIONS (1)
  - BRONCHOSPASM [None]
